FAERS Safety Report 4631927-3 (Version None)
Quarter: 2005Q2

REPORT INFORMATION
  Report Type: 
  Country: None (occurrence: None)
  Receive Date: 20050411
  Receipt Date: 20050331
  Transmission Date: 20051028
  Serious: Yes (Life-Threatening, Other)
  Sender: FDA-Public Use
  Company Number: DE-JNJFOC-20050400528

PATIENT
  Age: 68 Year
  Weight: 90 kg

DRUGS (7)
  1. ABCIXIMAB [Suspect]
     Route: 042
  2. ABCIXIMAB [Suspect]
     Indication: MYOCARDIAL INFARCTION
     Route: 042
  3. HEPARIN [Concomitant]
     Route: 042
  4. ASPIRIN [Concomitant]
     Dosage: ORALLY
     Route: 042
  5. ASPIRIN [Concomitant]
     Route: 042
  6. CLOPIDOGREL [Concomitant]
     Route: 049
  7. CLOPIDOGREL [Concomitant]
     Route: 049

REACTIONS (18)
  - ABDOMINAL DISTENSION [None]
  - ABDOMINAL PAIN [None]
  - ABDOMINAL REBOUND TENDERNESS [None]
  - ANURIA [None]
  - ASCITES [None]
  - BLOOD PRESSURE DECREASED [None]
  - BOWEL SOUNDS ABNORMAL [None]
  - GENERAL PHYSICAL HEALTH DETERIORATION [None]
  - HYPERHIDROSIS [None]
  - INTRA-ABDOMINAL HAEMORRHAGE [None]
  - OLIGURIA [None]
  - PERIPHERAL COLDNESS [None]
  - SHOCK HAEMORRHAGIC [None]
  - SOMNOLENCE [None]
  - SPLENIC HAEMORRHAGE [None]
  - SPLENIC INJURY [None]
  - SPLENIC RUPTURE [None]
  - SPLENOMEGALY [None]
